FAERS Safety Report 7071254-0 (Version None)
Quarter: 2010Q4

REPORT INFORMATION
  Report Type: 
  Country: None (occurrence: None)
  Receive Date: 20101029
  Receipt Date: 20101019
  Transmission Date: 20110411
  Serious: Yes (Hospitalization)
  Sender: FDA-Public Use
  Company Number: BE-AMGEN-US387440

PATIENT

DRUGS (1)
  1. ENBREL [Suspect]
     Indication: PSORIASIS
     Dosage: 50 MG, QWK
     Route: 058
     Dates: start: 20090623, end: 20091001

REACTIONS (3)
  - EXCISION OF AMPULLA OF VATER [None]
  - LIPASE INCREASED [None]
  - MALIGNANT NEOPLASM OF AMPULLA OF VATER [None]
